FAERS Safety Report 12558742 (Version 2)
Quarter: 2016Q3

REPORT INFORMATION
  Report Type: Spontaneous
  Country: US (occurrence: US)
  Receive Date: 20160715
  Receipt Date: 20160715
  Transmission Date: 20161109
  Serious: No
  Sender: FDA-Public Use
  Company Number: US-JNJFOC-20160612725

PATIENT
  Age: 75 Year
  Sex: Female
  Weight: 68.04 kg

DRUGS (2)
  1. IMODIUM A-D [Suspect]
     Active Substance: LOPERAMIDE HYDROCHLORIDE
     Route: 048
  2. IMODIUM A-D [Suspect]
     Active Substance: LOPERAMIDE HYDROCHLORIDE
     Indication: DIARRHOEA
     Route: 048
     Dates: start: 20160612, end: 20160612

REACTIONS (7)
  - Expired product administered [Unknown]
  - Product difficult to swallow [None]
  - Product size issue [Unknown]
  - Product physical consistency issue [None]
  - Product formulation issue [Unknown]
  - Wrong technique in product usage process [Unknown]
  - Drug effect decreased [None]

NARRATIVE: CASE EVENT DATE: 20160612
